FAERS Safety Report 11143021 (Version 2)
Quarter: 2015Q2

REPORT INFORMATION
  Report Type: Spontaneous
  Country: US (occurrence: US)
  Receive Date: 20150528
  Receipt Date: 20150624
  Transmission Date: 20150821
  Serious: No
  Sender: FDA-Public Use
  Company Number: US-ASTRAZENECA-2015SE51022

PATIENT
  Age: 54 Year
  Sex: Male
  Weight: 90.7 kg

DRUGS (2)
  1. NEXIUM [Suspect]
     Active Substance: ESOMEPRAZOLE MAGNESIUM
     Indication: GASTROINTESTINAL TRACT IRRITATION
     Route: 048
  2. METOPROLOL [Suspect]
     Active Substance: METOPROLOL
     Route: 065

REACTIONS (1)
  - Tendon disorder [Recovering/Resolving]

NARRATIVE: CASE EVENT DATE: 20150518
